FAERS Safety Report 8091675-7 (Version None)
Quarter: 2012Q1

REPORT INFORMATION
  Report Type: 
  Country: None (occurrence: None)
  Receive Date: 20120129
  Receipt Date: 20110921
  Transmission Date: 20120608
  Serious: No
  Sender: FDA-Public Use
  Company Number: US-ABBOTT-11P-163-0856806-00

PATIENT
  Age: 54 Year
  Sex: Female

DRUGS (4)
  1. HUMIRA [Suspect]
     Dates: start: 20110101
  2. PREMARIN [Concomitant]
     Indication: HORMONE REPLACEMENT THERAPY
  3. HUMIRA [Suspect]
     Indication: CROHN'S DISEASE
     Dates: start: 20080101, end: 20110101
  4. CLARITAN OTC [Concomitant]
     Indication: SEASONAL ALLERGY

REACTIONS (5)
  - NASAL DISCOMFORT [None]
  - PAROSMIA [None]
  - PAIN IN EXTREMITY [None]
  - DRUG EFFECT DECREASED [None]
  - FATIGUE [None]
